FAERS Safety Report 4613261-0 (Version None)
Quarter: 2005Q1

REPORT INFORMATION
  Report Type: 
  Country: None (occurrence: None)
  Receive Date: 20050315
  Receipt Date: 20050301
  Transmission Date: 20050727
  Serious: Yes (Hospitalization)
  Sender: FDA-Public Use
  Company Number: 02100-JPN-05-0078

PATIENT
  Age: 89 Year
  Sex: Male

DRUGS (8)
  1. CILOSTAZOL [Suspect]
     Indication: CEREBRAL INFARCTION
     Dosage: 200 MG ORAL
     Route: 048
     Dates: start: 20041229, end: 20050123
  2. ACETYLSALICYLIC ACID SRT [Concomitant]
  3. VALPROATE SODIUM [Concomitant]
  4. AMLODIPIEN BESILATE [Concomitant]
  5. ISOSORBIDE MONONITRATE [Concomitant]
  6. AMBROXOL HYDROCHLORIDE [Concomitant]
  7. LISINOPRIL [Concomitant]
  8. TICLOPIDINE HCL [Concomitant]

REACTIONS (9)
  - CARDIAC FAILURE [None]
  - DEPRESSED LEVEL OF CONSCIOUSNESS [None]
  - DISSEMINATED INTRAVASCULAR COAGULATION [None]
  - FEELING ABNORMAL [None]
  - HAEMOPTYSIS [None]
  - HAEMORRHAGE SUBCUTANEOUS [None]
  - HAEMORRHAGIC DIATHESIS [None]
  - PNEUMONIA [None]
  - RENAL IMPAIRMENT [None]
